FAERS Safety Report 21628263 (Version 1)
Quarter: 2022Q4

REPORT INFORMATION
  Report Type: Spontaneous
  Country: GB (occurrence: GB)
  Receive Date: 20221122
  Receipt Date: 20221122
  Transmission Date: 20230112
  Serious: No
  Sender: FDA-Public Use
  Company Number: GB-GSK-GB2022EME171701

PATIENT

DRUGS (1)
  1. SOTROVIMAB [Suspect]
     Active Substance: SOTROVIMAB
     Indication: Product used for unknown indication
     Dosage: UNK

REACTIONS (4)
  - Pruritus [Unknown]
  - Rash [Unknown]
  - Rash erythematous [Unknown]
  - Acne [Unknown]
